FAERS Safety Report 22211661 (Version 1)
Quarter: 2023Q2

REPORT INFORMATION
  Report Type: Spontaneous
  Country: US (occurrence: None)
  Receive Date: 20230413
  Receipt Date: 20230413
  Transmission Date: 20230721
  Serious: No
  Sender: FDA-Public Use
  Company Number: None

PATIENT
  Age: 63 Year
  Sex: Female
  Weight: 102.97 kg

DRUGS (17)
  1. TRETINOIN [Suspect]
     Active Substance: TRETINOIN
     Indication: Acute promyelocytic leukaemia
     Dosage: FREQUENCY : TWICE A DAY;?
     Route: 048
  2. ACYCLOVIR [Concomitant]
  3. COLCHICHINE [Concomitant]
  4. CYCLOBENZAPRINE [Concomitant]
  5. ELIQUIS [Concomitant]
     Active Substance: APIXABAN
  6. FLUCONAZOLE [Concomitant]
  7. LEVOFLOXACIN [Concomitant]
  8. LEVOTHYROXINE [Concomitant]
  9. LITHYRONINE [Concomitant]
  10. METOPROLOL [Concomitant]
  11. METROCREAM [Concomitant]
  12. ONDANSETRON [Concomitant]
  13. OXYCODONE [Concomitant]
  14. PANTOPRAZOLE [Concomitant]
  15. TRAZODONE [Concomitant]
     Active Substance: TRAZODONE HYDROCHLORIDE
  16. TRIAMCINOLONE [Concomitant]
     Active Substance: TRIAMCINOLONE
  17. ZOLPIDEM [Concomitant]

REACTIONS (1)
  - Neuropathy peripheral [None]
